FAERS Safety Report 5039484-7 (Version None)
Quarter: 2006Q2

REPORT INFORMATION
  Report Type: 
  Country: None (occurrence: None)
  Receive Date: 20060626
  Receipt Date: 20060609
  Transmission Date: 20061013
  Serious: Yes (Hospitalization)
  Sender: FDA-Public Use
  Company Number: L06-USA-02193-01

PATIENT
  Age: 23 Year
  Sex: Female

DRUGS (9)
  1. ESCITALOPRAM OXALATE [Suspect]
     Indication: BIPOLAR I DISORDER
     Dosage: 10 MG QD
  2. METHYLPHENIDATE HCL [Suspect]
     Indication: BIPOLAR I DISORDER
     Dosage: 10 MG BID
  3. VENLAFAXINE HCL [Suspect]
     Indication: BIPOLAR I DISORDER
     Dosage: 75 MG QD
  4. VENLAFAXINE HCL [Suspect]
     Indication: BIPOLAR I DISORDER
     Dosage: 150 MG QD
  5. VENLAFAXINE HCL [Suspect]
     Indication: BIPOLAR I DISORDER
     Dosage: 225 MG QD
  6. LAMOTRIGINE [Concomitant]
  7. GABAPENTIN [Concomitant]
  8. TRAZODONE HCL [Concomitant]
  9. MIRTAZAPINE [Concomitant]

REACTIONS (18)
  - ASTHENIA [None]
  - CHEST PAIN [None]
  - CONFUSIONAL STATE [None]
  - DIZZINESS [None]
  - DRUG INTERACTION [None]
  - FALL [None]
  - FLUSHING [None]
  - HALLUCINATION [None]
  - HYPERVENTILATION [None]
  - LABILE BLOOD PRESSURE [None]
  - LETHARGY [None]
  - MUSCLE RIGIDITY [None]
  - PAIN [None]
  - PALLOR [None]
  - PHARYNGEAL ERYTHEMA [None]
  - PYREXIA [None]
  - SEROTONIN SYNDROME [None]
  - TREMOR [None]
